FAERS Safety Report 13795960 (Version 3)
Quarter: 2017Q3

REPORT INFORMATION
  Report Type: Report from Study
  Country: US (occurrence: US)
  Receive Date: 20170726
  Receipt Date: 20170911
  Transmission Date: 20171127
  Serious: Yes (Congenital Anomaly, Other)
  Sender: FDA-Public Use
  Company Number: US-GILEAD-2017-0284127

PATIENT
  Age: 0 Year
  Sex: Female

DRUGS (9)
  1. EMTRICITABINE/TENOFOVIR DISOPROXIL FUMARATE [Suspect]
     Active Substance: EMTRICITABINE\TENOFOVIR DISOPROXIL FUMARATE
     Indication: HIV INFECTION
     Dosage: 500 MG, QD
     Route: 064
     Dates: start: 20161130, end: 20170712
  2. ZIDOVUDINE. [Suspect]
     Active Substance: ZIDOVUDINE
     Indication: HIV INFECTION
     Dosage: 127 MG/DAY
     Route: 064
     Dates: start: 20170712, end: 20170712
  3. DOLUTEGRAVIR [Suspect]
     Active Substance: DOLUTEGRAVIR
     Dosage: 50 MG, QD
     Route: 064
     Dates: start: 20170324, end: 20170712
  4. ZIDOVUDINE. [Suspect]
     Active Substance: ZIDOVUDINE
     Dosage: 1 MG/KG/HR, UNK
     Route: 064
     Dates: start: 20170712, end: 20170712
  5. DOLUTEGRAVIR [Suspect]
     Active Substance: DOLUTEGRAVIR
     Indication: HIV INFECTION
     Dosage: 50 MG, QD
     Route: 064
     Dates: start: 20160713, end: 20161129
  6. DARUNAVIR [Suspect]
     Active Substance: DARUNAVIR
     Indication: HIV INFECTION
     Dosage: 800 MG, QD
     Route: 064
     Dates: start: 20170324, end: 20170706
  7. RALTEGRAVIR. [Suspect]
     Active Substance: RALTEGRAVIR
     Indication: HIV INFECTION
     Dosage: 800 MG, QD
     Route: 064
     Dates: start: 20161130, end: 20170323
  8. RITONAVIR. [Suspect]
     Active Substance: RITONAVIR
     Indication: HIV INFECTION
     Dosage: 100 MG, QD
     Route: 064
     Dates: start: 20170324, end: 20170706
  9. LAMIVUDINE. [Suspect]
     Active Substance: LAMIVUDINE
     Indication: HIV INFECTION
     Dosage: 300 MG, QD
     Route: 064
     Dates: start: 20160713, end: 20161129

REACTIONS (2)
  - Foetal exposure during pregnancy [Recovered/Resolved]
  - Ectopic kidney [Unknown]

NARRATIVE: CASE EVENT DATE: 20161130
